FAERS Safety Report 4284605-7 (Version None)
Quarter: 2004Q1

REPORT INFORMATION
  Report Type: 
  Country: None (occurrence: None)
  Receive Date: 20040130
  Receipt Date: 20040113
  Transmission Date: 20041129
  Serious: Yes (Hospitalization)
  Sender: FDA-Public Use
  Company Number: FR_040103402

PATIENT
  Age: 72 Year
  Sex: Male

DRUGS (1)
  1. ZYPREXA [Suspect]
     Dosage: UNK
     Route: 065
     Dates: end: 20031128

REACTIONS (4)
  - BRONCHITIS [None]
  - MYOGLOBINURIA [None]
  - PYREXIA [None]
  - RENAL FAILURE ACUTE [None]
